FAERS Safety Report 18911425 (Version 1)
Quarter: 2021Q1

REPORT INFORMATION
  Report Type: Spontaneous
  Country: US (occurrence: US)
  Receive Date: 20210218
  Receipt Date: 20210218
  Transmission Date: 20210420
  Serious: No
  Sender: FDA-Public Use
  Company Number: US-TAKEDA-2021TUS008051

PATIENT
  Sex: Female

DRUGS (2)
  1. FIRAZYR [Suspect]
     Active Substance: ICATIBANT ACETATE
     Indication: ACQUIRED IMMUNODEFICIENCY SYNDROME
     Dosage: 30 MILLIGRAM, QD
     Route: 058
     Dates: start: 201812
  2. FIRAZYR [Suspect]
     Active Substance: ICATIBANT ACETATE
     Indication: ACQUIRED IMMUNODEFICIENCY SYNDROME
     Dosage: 30 MILLIGRAM, QD
     Route: 058
     Dates: start: 201812

REACTIONS (1)
  - Injection site pain [Unknown]
